FAERS Safety Report 8515203-4 (Version None)
Quarter: 2012Q3

REPORT INFORMATION
  Report Type: 
  Country: None (occurrence: None)
  Receive Date: 20120717
  Receipt Date: 20120706
  Transmission Date: 20120928
  Serious: Yes (Hospitalization)
  Sender: FDA-Public Use
  Company Number: CN-GLAXOSMITHKLINE-B0814900A

PATIENT
  Sex: Female
  Weight: 48 kg

DRUGS (1)
  1. PAROXETINE HCL [Suspect]
     Indication: DEPRESSION
     Dosage: 20MG PER DAY
     Route: 048
     Dates: start: 20110411, end: 20110417

REACTIONS (6)
  - DRY MOUTH [None]
  - MOVEMENT DISORDER [None]
  - ASTHENIA [None]
  - MYALGIA [None]
  - ILL-DEFINED DISORDER [None]
  - DEPRESSION [None]
